FAERS Safety Report 24525519 (Version 1)
Quarter: 2024Q4

REPORT INFORMATION
  Report Type: Spontaneous
  Country: IN (occurrence: IN)
  Receive Date: 20241020
  Receipt Date: 20241020
  Transmission Date: 20250114
  Serious: Yes (Hospitalization)
  Sender: GE HEALTHCARE
  Company Number: IN-GE HEALTHCARE-2024CSU011939

PATIENT
  Age: 55 Year
  Sex: Male

DRUGS (3)
  1. OMNIPAQUE [Suspect]
     Active Substance: IOHEXOL
     Indication: Stent placement
     Dosage: 110 ML, TOTAL
     Route: 013
  2. OMNIPAQUE [Suspect]
     Active Substance: IOHEXOL
     Indication: Angiocardiogram
  3. STREPTOKINASE [Concomitant]
     Active Substance: STREPTOKINASE
     Indication: Thrombolysis
     Dosage: UNK

REACTIONS (1)
  - Pancreatitis acute [Recovered/Resolved]
